FAERS Safety Report 15362107 (Version 1)
Quarter: 2018Q3

REPORT INFORMATION
  Report Type: Spontaneous
  Country: JP (occurrence: JP)
  Receive Date: 20180907
  Receipt Date: 20180907
  Transmission Date: 20181010
  Serious: Yes (Death, Hospitalization, Other)
  Sender: FDA-Public Use
  Company Number: JP-MYLANLABS-2018M1065344

PATIENT
  Age: 80 Year
  Sex: Female

DRUGS (3)
  1. PREDNISOLONE. [Suspect]
     Active Substance: PREDNISOLONE
     Indication: ACQUIRED HAEMOPHILIA
     Dosage: HAD BEEN RECEIVING FOR 40 YEARS TO TREAT RHEUMATOID ARTHRITIS
     Route: 065
  2. PREDNISOLONE. [Suspect]
     Active Substance: PREDNISOLONE
     Indication: RHEUMATOID ARTHRITIS
     Dosage: STARTED AS A TREATMENT FOR ACQUIRED HAEMOPHILIA A; AFTER RECEIVING AN INITIAL DOSE FOR 4 WEEKS, T...
     Route: 065
  3. PREDNISOLONE. [Suspect]
     Active Substance: PREDNISOLONE
     Indication: IMMUNOSUPPRESSANT DRUG THERAPY

REACTIONS (15)
  - Colitis ischaemic [Fatal]
  - Coagulation factor VIII level increased [Fatal]
  - Renal infarct [Fatal]
  - Metabolic acidosis [Not Recovered/Not Resolved]
  - Respiratory failure [Not Recovered/Not Resolved]
  - Colon gangrene [Fatal]
  - Arteriosclerosis [Fatal]
  - Hepatic infarction [Fatal]
  - Splenic infarction [Fatal]
  - Hypoperfusion [Fatal]
  - Von Willebrand^s factor activity increased [Fatal]
  - Septic shock [Fatal]
  - Multiple organ dysfunction syndrome [Fatal]
  - Thrombosis [Fatal]
  - Respiratory acidosis [Not Recovered/Not Resolved]
